FAERS Safety Report 21447610 (Version 2)
Quarter: 2023Q1

REPORT INFORMATION
  Report Type: Spontaneous
  Country: NL (occurrence: NL)
  Receive Date: 20221012
  Receipt Date: 20230320
  Transmission Date: 20230418
  Serious: Yes (Hospitalization, Disabling, Other)
  Sender: FDA-Public Use
  Company Number: NL-LUNDBECK-DKLU3053134

PATIENT
  Sex: Female
  Weight: 45 kg

DRUGS (2)
  1. ESCITALOPRAM OXALATE [Suspect]
     Active Substance: ESCITALOPRAM OXALATE
     Indication: Anxiety
     Dosage: ACTUAL:0 DROPS TO 13 DROPS OF LEXAPRO
     Route: 048
     Dates: start: 201811, end: 202105
  2. ESCITALOPRAM OXALATE [Suspect]
     Active Substance: ESCITALOPRAM OXALATE
     Indication: Stress

REACTIONS (41)
  - Gait inability [Recovered/Resolved]
  - Balance disorder [Recovered/Resolved]
  - Blood pressure fluctuation [Unknown]
  - Blood potassium decreased [Recovered/Resolved]
  - Urine ketone body [Unknown]
  - Cortisol increased [Recovered/Resolved]
  - Blood glucose increased [Unknown]
  - Ventricular extrasystoles [Recovering/Resolving]
  - Autonomic nervous system imbalance [Not Recovered/Not Resolved]
  - Syncope [Recovered/Resolved with Sequelae]
  - Hypotension [Recovering/Resolving]
  - Muscular weakness [Recovered/Resolved]
  - Fall [Recovered/Resolved]
  - Hallucination [Recovered/Resolved]
  - Tremor [Recovered/Resolved with Sequelae]
  - Tachycardia [Recovered/Resolved with Sequelae]
  - Motion sickness [Recovered/Resolved]
  - Blepharospasm [Recovered/Resolved]
  - Miosis [Recovered/Resolved]
  - Cognitive disorder [Recovered/Resolved with Sequelae]
  - Intrusive thoughts [Recovered/Resolved]
  - Emotional disorder [Recovered/Resolved]
  - Judgement impaired [Recovered/Resolved]
  - Temperature intolerance [Recovered/Resolved]
  - Rash erythematous [Recovered/Resolved]
  - Bruxism [Recovered/Resolved]
  - Nocturia [Unknown]
  - Sleep terror [Recovered/Resolved]
  - Visual snow syndrome [Recovered/Resolved]
  - Unevaluable event [Recovered/Resolved with Sequelae]
  - Off label use [Unknown]
  - Memory impairment [Recovered/Resolved with Sequelae]
  - Flushing [Recovered/Resolved]
  - Fatigue [Recovered/Resolved]
  - Muscle spasms [Recovered/Resolved]
  - Vomiting [Recovered/Resolved]
  - Nausea [Recovered/Resolved]
  - Nightmare [Recovered/Resolved]
  - Eye pain [Recovered/Resolved]
  - Dysuria [Unknown]
  - Dry mouth [Unknown]

NARRATIVE: CASE EVENT DATE: 20181201
